FAERS Safety Report 9032075 (Version 1)
Quarter: 2013Q1

REPORT INFORMATION
  Report Type: Spontaneous
  Country: FR (occurrence: FR)
  Receive Date: 20130125
  Receipt Date: 20130125
  Transmission Date: 20140127
  Serious: Yes (Other)
  Sender: FDA-Public Use
  Company Number: FR-009507513-1301FRA009954

PATIENT
  Age: 82 Year
  Sex: Female

DRUGS (3)
  1. TIENAM 500MG/500MG, POUDRE POUR PERFUSION [Suspect]
     Indication: DEVICE RELATED INFECTION
     Dosage: 1 G, BID
     Route: 042
     Dates: start: 20121026, end: 20121210
  2. ZECLAR [Suspect]
     Indication: DEVICE RELATED INFECTION
     Dosage: 500 MG, BID
     Route: 048
     Dates: start: 20121026, end: 20121209
  3. VANCOMYCIN [Suspect]
     Indication: DEVICE RELATED INFECTION
     Dosage: 750 MG, BID
     Route: 042
     Dates: start: 20121026, end: 20121210

REACTIONS (3)
  - Logorrhoea [Recovered/Resolved]
  - Delirium [Recovered/Resolved]
  - Confusional state [Recovered/Resolved]
